FAERS Safety Report 21729241 (Version 2)
Quarter: 2022Q4

REPORT INFORMATION
  Report Type: Spontaneous
  Country: US (occurrence: US)
  Receive Date: 20221214
  Receipt Date: 20221220
  Transmission Date: 20230113
  Serious: No
  Sender: FDA-Public Use
  Company Number: US-002147023-NVSC2022US289787

PATIENT
  Age: 85 Year
  Sex: Male

DRUGS (2)
  1. METOPROLOL [Suspect]
     Active Substance: METOPROLOL
     Indication: Product used for unknown indication
     Dosage: 50 MG
     Route: 065
  2. METOPROLOL [Suspect]
     Active Substance: METOPROLOL
     Dosage: 25 MG
     Route: 065

REACTIONS (2)
  - Heart rate decreased [Unknown]
  - Fatigue [Unknown]
